FAERS Safety Report 7083645-2 (Version None)
Quarter: 2010Q4

REPORT INFORMATION
  Report Type: 
  Country: None (occurrence: None)
  Receive Date: 20101103
  Receipt Date: 20101103
  Transmission Date: 20110411
  Serious: No
  Sender: FDA-Public Use
  Company Number: None

PATIENT
  Age: 55 Year
  Sex: Male

DRUGS (3)
  1. CHLORHEXIDINE GLUCONATE [Suspect]
     Indication: PREOPERATIVE CARE
     Dates: start: 20100629, end: 20100629
  2. CHLORHEXIDINE GLUCONATE [Suspect]
     Dates: start: 20101026, end: 20101026
  3. LOHIST -BROMPHENIRAMINE- [Concomitant]

REACTIONS (4)
  - BLISTER [None]
  - DERMATITIS CONTACT [None]
  - ERYTHEMA [None]
  - RASH [None]
